FAERS Safety Report 14366918 (Version 3)
Quarter: 2018Q1

REPORT INFORMATION
  Report Type: Report from Study
  Country: US (occurrence: US)
  Receive Date: 20180109
  Receipt Date: 20180125
  Transmission Date: 20180509
  Serious: Yes (Hospitalization, Other)
  Sender: FDA-Public Use
  Company Number: US-GILEAD-2017-0313154

PATIENT
  Age: 65 Year
  Sex: Female
  Weight: 113.38 kg

DRUGS (19)
  1. METOPROLOL TARTRATE. [Concomitant]
     Active Substance: METOPROLOL TARTRATE
  2. LIVALO [Concomitant]
     Active Substance: PITAVASTATIN CALCIUM
  3. BENZONATATE. [Concomitant]
     Active Substance: BENZONATATE
  4. LASIX [Concomitant]
     Active Substance: FUROSEMIDE
  5. FLUTICASONE. [Concomitant]
     Active Substance: FLUTICASONE
  6. TYLENOL [Concomitant]
     Active Substance: ACETAMINOPHEN
  7. ALBUTEROL                          /00139501/ [Concomitant]
     Active Substance: ALBUTEROL
  8. AMBRISENTAN [Suspect]
     Active Substance: AMBRISENTAN
     Dosage: 5 MG, UNK
     Route: 048
     Dates: start: 20171227
  9. PROVENTIL [Concomitant]
     Active Substance: ALBUTEROL
  10. AMBRISENTAN [Suspect]
     Active Substance: AMBRISENTAN
     Indication: PULMONARY ARTERIAL HYPERTENSION
     Dosage: 10 MG, QD
     Route: 065
  11. LOSARTAN. [Concomitant]
     Active Substance: LOSARTAN
  12. PANTOPRAZOLE [Concomitant]
     Active Substance: PANTOPRAZOLE
  13. ADCIRCA [Suspect]
     Active Substance: TADALAFIL
     Indication: PULMONARY ARTERIAL HYPERTENSION
     Route: 065
  14. ADVIL (MEFENAMIC ACID) [Concomitant]
     Active Substance: MEFENAMIC ACID
  15. METOPROLOL SUCCINATE. [Concomitant]
     Active Substance: METOPROLOL SUCCINATE
  16. ASPIRIN                            /00002701/ [Concomitant]
     Active Substance: ASPIRIN
  17. LEXAPRO [Concomitant]
     Active Substance: ESCITALOPRAM OXALATE
  18. ALDACTONE [Concomitant]
     Active Substance: SPIRONOLACTONE
  19. ALLOPURINOL. [Concomitant]
     Active Substance: ALLOPURINOL

REACTIONS (6)
  - Weight increased [Not Recovered/Not Resolved]
  - Malaise [Unknown]
  - Gait disturbance [Not Recovered/Not Resolved]
  - Pneumonia [Recovered/Resolved]
  - Swelling [Unknown]
  - Dyspnoea [Recovered/Resolved]

NARRATIVE: CASE EVENT DATE: 20171226
